FAERS Safety Report 9507679 (Version 1)
Quarter: 2013Q1

REPORT INFORMATION
  Report Type: Spontaneous
  Country: US (occurrence: None)
  Receive Date: 20130305
  Receipt Date: 20130305
  Transmission Date: 20140127
  Serious: No
  Sender: FDA-Public Use
  Company Number: 163-21880-12050723

PATIENT
  Age: 83 Year
  Sex: Male

DRUGS (1)
  1. REVLIMID [Suspect]
     Indication: LYMPHOPROLIFERATIVE DISORDER
     Dosage: 5MG, 1 IN 1 D, PO
     Dates: start: 201105

REACTIONS (4)
  - Bacterial infection [None]
  - Cardiac failure congestive [None]
  - Neuropathy peripheral [None]
  - Chronic obstructive pulmonary disease [None]
